FAERS Safety Report 8168118 (Version 3)
Quarter: 2014Q1

REPORT INFORMATION
  Report Type: Spontaneous
  Country: US (occurrence: US)
  Receive Date: 20111004
  Receipt Date: 20140130
  Transmission Date: 20141002
  Serious: Yes (Hospitalization)
  Sender: FDA-Public Use
  Company Number: US-GLAXOSMITHKLINE-A0835776A

PATIENT
  Age: 54 Year
  Sex: Male

DRUGS (1)
  1. AVANDIA [Suspect]
     Indication: TYPE 2 DIABETES MELLITUS
     Dosage: 2MG PER DAY
     Route: 048
     Dates: start: 20060505, end: 200903

REACTIONS (5)
  - Renal failure acute [Not Recovered/Not Resolved]
  - Cardiac disorder [Unknown]
  - Renal injury [Unknown]
  - Palpitations [Unknown]
  - Oedema [Unknown]
